FAERS Safety Report 17069804 (Version 1)
Quarter: 2019Q4

REPORT INFORMATION
  Report Type: Spontaneous
  Country: FR (occurrence: FR)
  Receive Date: 20191125
  Receipt Date: 20191125
  Transmission Date: 20200122
  Serious: Yes (Other)
  Sender: FDA-Public Use
  Company Number: FR-TEVA-2019-FR-1139978

PATIENT
  Age: 54 Year
  Sex: Female
  Weight: 44 kg

DRUGS (9)
  1. NOCTAMIDE [Concomitant]
     Active Substance: LORMETAZEPAM
  2. ONBREZ BREEZHALER [Concomitant]
     Active Substance: INDACATEROL
     Dosage: BREEZHALER
  3. ERBITUX [Suspect]
     Active Substance: CETUXIMAB
     Indication: LIP AND/OR ORAL CAVITY CANCER
     Dosage: 500 MG/M2 PER 14 DAYS
     Route: 041
     Dates: start: 20181022, end: 20190808
  4. SKENAN [Concomitant]
     Active Substance: MORPHINE SULFATE
  5. INNOHEP [Concomitant]
     Active Substance: TINZAPARIN SODIUM
  6. STRESAM, G?LULE [Concomitant]
     Active Substance: ETIFOXINE HYDROCHLORIDE
  7. NEBILOX 5 MG, COMPRIM? QUADRIS?CABLE [Concomitant]
     Dosage: QUADRISECABLE TABLET
  8. DOXYCYCLINE. [Suspect]
     Active Substance: DOXYCYCLINE
     Indication: ANTIBIOTIC PROPHYLAXIS
     Dosage: 100 MG
     Route: 048
     Dates: start: 20181022, end: 20190808
  9. ACTISKENAN [Concomitant]
     Active Substance: MORPHINE SULFATE

REACTIONS (1)
  - Hepatocellular injury [Not Recovered/Not Resolved]

NARRATIVE: CASE EVENT DATE: 20190808
